FAERS Safety Report 18646800 (Version 1)
Quarter: 2020Q4

REPORT INFORMATION
  Report Type: Spontaneous
  Country: US (occurrence: US)
  Receive Date: 20201222
  Receipt Date: 20201222
  Transmission Date: 20210114
  Serious: No
  Sender: FDA-Public Use
  Company Number: US-TELIGENT, INC-20200500010

PATIENT
  Sex: Male
  Weight: 71.43 kg

DRUGS (1)
  1. ECONAZOLE NITRATE CREAM 1% [Suspect]
     Active Substance: ECONAZOLE NITRATE
     Indication: TINEA PEDIS
     Dosage: UNK
     Dates: start: 202002

REACTIONS (3)
  - No adverse event [Unknown]
  - Expired product administered [Unknown]
  - Product physical consistency issue [Unknown]
